FAERS Safety Report 6610087-3 (Version None)
Quarter: 2010Q1

REPORT INFORMATION
  Report Type: 
  Country: None (occurrence: None)
  Receive Date: 20100216
  Receipt Date: 20090223
  Transmission Date: 20100710
  Serious: Yes (Other)
  Sender: FDA-Public Use
  Company Number: MC200900065

PATIENT

DRUGS (2)
  1. ANGIOMAX [Suspect]
     Indication: PERCUTANEOUS CORONARY INTERVENTION
     Dates: start: 20090201, end: 20090201
  2. ANGIOMAX [Suspect]
     Indication: STENT PLACEMENT
     Dates: start: 20090201, end: 20090201

REACTIONS (1)
  - THROMBOSIS IN DEVICE [None]
